FAERS Safety Report 12759265 (Version 1)
Quarter: 2016Q3

REPORT INFORMATION
  Report Type: Spontaneous
  Country: US (occurrence: US)
  Receive Date: 20160916
  Receipt Date: 20160916
  Transmission Date: 20161109
  Serious: Yes (Other)
  Sender: FDA-Public Use
  Company Number: None

PATIENT
  Age: 82 Year
  Sex: Male

DRUGS (1)
  1. COPAXONE [Suspect]
     Active Substance: GLATIRAMER ACETATE
     Indication: MULTIPLE SCLEROSIS
     Route: 058
     Dates: start: 20151027, end: 20160825

REACTIONS (6)
  - Body temperature increased [None]
  - Blood pressure increased [None]
  - Adverse reaction [None]
  - Dizziness [None]
  - Tremor [None]
  - Burning sensation [None]

NARRATIVE: CASE EVENT DATE: 20160825
